FAERS Safety Report 7548568-0 (Version None)
Quarter: 2011Q2

REPORT INFORMATION
  Report Type: 
  Country: None (occurrence: None)
  Receive Date: 20110608
  Receipt Date: 20110401
  Transmission Date: 20111010
  Serious: No
  Sender: FDA-Public Use
  Company Number: USA/USA/11/0017859

PATIENT
  Age: 75 Year
  Sex: Male

DRUGS (3)
  1. FAMOTIDINE [Suspect]
     Indication: DYSPEPSIA
     Dosage: 10 MG, 4 PILLS MORNING AND 4 PILLS MORNING AND 4 PILLS EVENING, ORAL
     Route: 048
  2. FAMOTIDINE [Suspect]
     Indication: DYSPEPSIA
     Dosage: 40 MG, 2 IN 1 D, ORAL
     Route: 048
  3. LEVOTHROID (LEVOTHYROXINE SODIUM) [Concomitant]

REACTIONS (4)
  - MUSCULOSKELETAL STIFFNESS [None]
  - NECK PAIN [None]
  - PRODUCT QUALITY ISSUE [None]
  - DIZZINESS [None]
